FAERS Safety Report 19649378 (Version 1)
Quarter: 2021Q3

REPORT INFORMATION
  Report Type: Spontaneous
  Country: US (occurrence: US)
  Receive Date: 20210802
  Receipt Date: 20210802
  Transmission Date: 20211014
  Serious: No
  Sender: FDA-Public Use
  Company Number: US-ASTRAZENECA-2021A648879

PATIENT
  Age: 840 Month
  Sex: Male
  Weight: 70 kg

DRUGS (1)
  1. LOKELMA [Suspect]
     Active Substance: SODIUM ZIRCONIUM CYCLOSILICATE
     Indication: BLOOD POTASSIUM INCREASED
     Route: 048
     Dates: start: 202107

REACTIONS (3)
  - Product use issue [Unknown]
  - Suspected product contamination [Unknown]
  - Product packaging issue [Unknown]

NARRATIVE: CASE EVENT DATE: 202107
